FAERS Safety Report 23971127 (Version 1)
Quarter: 2024Q2

REPORT INFORMATION
  Report Type: Spontaneous
  Country: ZA (occurrence: None)
  Receive Date: 20240613
  Receipt Date: 20240613
  Transmission Date: 20240716
  Serious: Yes (Hospitalization)
  Sender: FDA-Public Use
  Company Number: 2024A132817

PATIENT
  Age: 25202 Day
  Sex: Female

DRUGS (6)
  1. DAPAGLIFLOZIN PROPANEDIOL [Suspect]
     Active Substance: DAPAGLIFLOZIN PROPANEDIOL
     Indication: Diabetes mellitus
     Dosage: 10.0MG UNKNOWN
     Route: 048
  2. ATENOLOL [Concomitant]
     Active Substance: ATENOLOL
     Indication: Hypertension
     Dosage: 50.0MG UNKNOWN
     Route: 048
  3. ISMO [Concomitant]
     Active Substance: ISOSORBIDE MONONITRATE
     Indication: Angina pectoris
     Dosage: 20.0MG UNKNOWN
     Route: 048
  4. ECOTRIN [Concomitant]
     Active Substance: ASPIRIN
     Indication: Anticoagulant therapy
     Dosage: 81.0MG UNKNOWN
     Route: 048
  5. METFORMIN HYDROCHLORIDE [Concomitant]
     Active Substance: METFORMIN HYDROCHLORIDE
     Indication: Diabetes mellitus
     Dosage: 500.0MG UNKNOWN
     Route: 048
  6. BIO-GLIBENCLAMIDE [Concomitant]
     Indication: Diabetes mellitus
     Dosage: 5.0MG UNKNOWN
     Route: 048

REACTIONS (1)
  - Cough [Unknown]
